FAERS Safety Report 19023602 (Version 1)
Quarter: 2021Q1

REPORT INFORMATION
  Report Type: Spontaneous
  Country: US (occurrence: US)
  Receive Date: 20210318
  Receipt Date: 20210318
  Transmission Date: 20210420
  Serious: No
  Sender: FDA-Public Use
  Company Number: US-TEVA-2021-US-1889256

PATIENT
  Sex: Female

DRUGS (1)
  1. NABUMETONE ACTAVIS [Suspect]
     Active Substance: NABUMETONE
     Route: 065

REACTIONS (1)
  - Abdominal discomfort [Unknown]
